FAERS Safety Report 7931203-7 (Version None)
Quarter: 2011Q4

REPORT INFORMATION
  Report Type: 
  Country: None (occurrence: None)
  Receive Date: 20111121
  Receipt Date: 20111110
  Transmission Date: 20120403
  Serious: Yes (Hospitalization)
  Sender: FDA-Public Use
  Company Number: US-BAYER-2011-075735

PATIENT
  Sex: Female

DRUGS (3)
  1. NSAID'S [Concomitant]
  2. TYSABRI [Concomitant]
  3. YAZ [Suspect]
     Indication: PRODUCT USED FOR UNKNOWN INDICATION

REACTIONS (2)
  - GALLBLADDER INJURY [None]
  - MENTAL DISORDER [None]
